FAERS Safety Report 15617596 (Version 1)
Quarter: 2018Q4

REPORT INFORMATION
  Report Type: Spontaneous
  Country: US (occurrence: US)
  Receive Date: 20181114
  Receipt Date: 20181114
  Transmission Date: 20190205
  Serious: No
  Sender: FDA-Public Use
  Company Number: None

PATIENT
  Age: 17 Year
  Sex: Male
  Weight: 60.75 kg

DRUGS (5)
  1. MONTELUKAST SODIUM 10 MG [Suspect]
     Active Substance: MONTELUKAST SODIUM
     Indication: ASTHMA
     Route: 048
     Dates: start: 20180715, end: 20180815
  2. ALBUTEROL. [Concomitant]
     Active Substance: ALBUTEROL
  3. DAILY VITAMIN [Concomitant]
     Active Substance: VITAMINS
  4. QVAR [Concomitant]
     Active Substance: BECLOMETHASONE DIPROPIONATE
  5. MONTELUKAST [Concomitant]
     Active Substance: MONTELUKAST SODIUM

REACTIONS (21)
  - Sneezing [None]
  - Pain [None]
  - Muscle spasms [None]
  - Influenza [None]
  - Oropharyngeal pain [None]
  - Back pain [None]
  - Heart rate increased [None]
  - Diarrhoea [None]
  - Nasal congestion [None]
  - Pain in extremity [None]
  - Dyspnoea [None]
  - Cough [None]
  - Asthenia [None]
  - Pyrexia [None]
  - Headache [None]
  - Nausea [None]
  - Wheezing [None]
  - Angina pectoris [None]
  - Wrong product administered [None]
  - Fatigue [None]
  - Dizziness [None]

NARRATIVE: CASE EVENT DATE: 20180801
